FAERS Safety Report 7812322-2 (Version None)
Quarter: 2011Q4

REPORT INFORMATION
  Report Type: 
  Country: None (occurrence: None)
  Receive Date: 20111013
  Receipt Date: 20111007
  Transmission Date: 20120403
  Serious: Yes (Death, Hospitalization)
  Sender: FDA-Public Use
  Company Number: US-GLAXOSMITHKLINE-A0766648A

PATIENT
  Age: 53 Year
  Sex: Male

DRUGS (1)
  1. AVANDIA [Suspect]
     Indication: DIABETES MELLITUS
     Dosage: 4MG TWICE PER DAY
     Route: 048
     Dates: start: 20000915, end: 20011106

REACTIONS (5)
  - MULTIPLE FRACTURES [None]
  - RENAL DISORDER [None]
  - DEATH [None]
  - MYOCARDIAL INFARCTION [None]
  - LIVER DISORDER [None]
